FAERS Safety Report 11228850 (Version 1)
Quarter: 2015Q2

REPORT INFORMATION
  Report Type: Spontaneous
  Country: US (occurrence: None)
  Receive Date: 20150629
  Receipt Date: 20150629
  Transmission Date: 20150821
  Serious: Yes (Hospitalization)
  Sender: FDA-Public Use
  Company Number: None

PATIENT
  Age: 67 Year
  Sex: Male
  Weight: 86.6 kg

DRUGS (10)
  1. ACETAMINOPHEN. [Concomitant]
     Active Substance: ACETAMINOPHEN
  2. ALLOPURINOL. [Concomitant]
     Active Substance: ALLOPURINOL
  3. BISACODYL. [Concomitant]
     Active Substance: BISACODYL
  4. HYDROCODONE BITARTRATE AND ACETAMINOPHEN [Concomitant]
     Active Substance: ACETAMINOPHEN\HYDROCODONE BITARTRATE
  5. LISINOPRIL. [Concomitant]
     Active Substance: LISINOPRIL
  6. WARFARIN 3MG CADILA HEALTHCARE [Suspect]
     Active Substance: WARFARIN
     Indication: ATRIAL FIBRILLATION
     Route: 048
  7. CITALOPRAM [Concomitant]
     Active Substance: CITALOPRAM HYDROBROMIDE
  8. SENNA [Concomitant]
     Active Substance: SENNA LEAF\SENNOSIDES\SENNOSIDES A AND B
  9. SODIUM PHOSPHATE [Concomitant]
     Active Substance: SODIUM PHOSPHATE
  10. SIMVASTATIN. [Concomitant]
     Active Substance: SIMVASTATIN

REACTIONS (2)
  - Haemorrhage [None]
  - Haematemesis [None]

NARRATIVE: CASE EVENT DATE: 20150625
